FAERS Safety Report 6819095-0 (Version None)
Quarter: 2010Q3

REPORT INFORMATION
  Report Type: 
  Country: None (occurrence: None)
  Receive Date: 20100701
  Receipt Date: 20100618
  Transmission Date: 20110219
  Serious: Yes (Hospitalization)
  Sender: FDA-Public Use
  Company Number: 7004052

PATIENT
  Age: 28 Year
  Sex: Female
  Weight: 204 kg

DRUGS (13)
  1. REBIF [Suspect]
     Indication: MULTIPLE SCLEROSIS
     Dosage: 44 MCG, 3 IN 1 WK, SUBCUTANEOUS
     Route: 058
     Dates: start: 20100305, end: 20100605
  2. NOVOLOG [Concomitant]
  3. NEURONTIN [Concomitant]
  4. TRAMADOL APAP (TARMADOL) [Concomitant]
  5. OSTEOBIFLEX (OSTEO BI-FLEX) [Concomitant]
  6. FUROSEMIDE [Concomitant]
  7. DETROL LA [Concomitant]
  8. VITAMIN D [Concomitant]
  9. FENERMINE (ALL OTHER THERAPEUTIC PRODUCTS) [Concomitant]
  10. OMEPRAZOLE [Concomitant]
  11. CITALOPRAM HYDROBROMIDE [Concomitant]
  12. LEVOTHYROXINE SODIUM [Concomitant]
  13. TRAZODONE HCL [Concomitant]

REACTIONS (9)
  - ANXIETY [None]
  - CRYING [None]
  - DEPRESSION [None]
  - FALL [None]
  - INJECTION SITE PAIN [None]
  - MULTIPLE SCLEROSIS RELAPSE [None]
  - MUSCULAR WEAKNESS [None]
  - OPTIC NEURITIS [None]
  - VISION BLURRED [None]
